FAERS Safety Report 14467545 (Version 1)
Quarter: 2018Q1

REPORT INFORMATION
  Report Type: Spontaneous
  Country: US (occurrence: US)
  Receive Date: 20180131
  Receipt Date: 20180131
  Transmission Date: 20180509
  Serious: No
  Sender: FDA-Public Use
  Company Number: US-ALLERGAN-1702394US

PATIENT
  Sex: Female

DRUGS (3)
  1. SAVELLA [Suspect]
     Active Substance: MILNACIPRAN HYDROCHLORIDE
     Dosage: 50 MG, BID
     Route: 048
     Dates: start: 2009
  2. SAVELLA [Suspect]
     Active Substance: MILNACIPRAN HYDROCHLORIDE
     Indication: FIBROMYALGIA
     Dosage: UNK UNK, BID
     Route: 048
     Dates: start: 201601
  3. COENZYME Q10 [Concomitant]
     Active Substance: UBIDECARENONE
     Indication: HYPERTENSION

REACTIONS (8)
  - Memory impairment [Recovering/Resolving]
  - Lymphadenopathy [Recovering/Resolving]
  - Neutrophil count decreased [Recovering/Resolving]
  - Anxiety [Recovering/Resolving]
  - Somnolence [Recovering/Resolving]
  - Decreased interest [Recovering/Resolving]
  - Wrong technique in product usage process [Unknown]
  - White blood cell count decreased [Recovering/Resolving]
